FAERS Safety Report 4971330-X (Version None)
Quarter: 2006Q2

REPORT INFORMATION
  Report Type: 
  Country: None (occurrence: None)
  Receive Date: 20060413
  Receipt Date: 20060227
  Transmission Date: 20061013
  Serious: Yes (Hospitalization)
  Sender: FDA-Public Use
  Company Number: JP-BRACCO-BRO-009861

PATIENT
  Sex: Male

DRUGS (1)
  1. IOPAMIRON [Suspect]
     Dosage: 20 ML/SEC
     Route: 042
     Dates: start: 20060223, end: 20060223

REACTIONS (4)
  - CARDIO-RESPIRATORY ARREST [None]
  - CYANOSIS [None]
  - SHOCK [None]
  - VENTRICULAR FIBRILLATION [None]
